FAERS Safety Report 12633459 (Version 1)
Quarter: 2016Q3

REPORT INFORMATION
  Report Type: Spontaneous
  Country: US (occurrence: US)
  Receive Date: 20160809
  Receipt Date: 20160809
  Transmission Date: 20161109
  Serious: No
  Sender: FDA-Public Use
  Company Number: US-SHIRE-US201609770

PATIENT
  Age: 72 Year
  Sex: Male
  Weight: 86.62 kg

DRUGS (2)
  1. ALLOPURINOL. [Concomitant]
     Active Substance: ALLOPURINOL
     Indication: GOUT
     Dosage: 200 MG, 1X/DAY:QD
     Route: 048
  2. LIALDA [Suspect]
     Active Substance: MESALAMINE
     Indication: CROHN^S DISEASE
     Dosage: 2.4 G (TWO 1.2 G TABLETS), 1X/DAY:QD
     Route: 048

REACTIONS (4)
  - Product use issue [Not Recovered/Not Resolved]
  - Prostatic specific antigen increased [Unknown]
  - Pulmonary mass [Unknown]
  - Hypertension [Unknown]

NARRATIVE: CASE EVENT DATE: 201510
